FAERS Safety Report 6379110-8 (Version None)
Quarter: 2009Q3

REPORT INFORMATION
  Report Type: 
  Country: None (occurrence: None)
  Receive Date: 20090923
  Receipt Date: 20090923
  Transmission Date: 20100115
  Serious: No
  Sender: FDA-Public Use
  Company Number: None

PATIENT
  Age: 61 Year
  Sex: Female
  Weight: 87 kg

DRUGS (14)
  1. INSULIN ASPART [Suspect]
     Indication: TYPE 1 DIABETES MELLITUS
     Dosage: SSI-H SQ Q6HOURS
     Route: 058
     Dates: start: 20090518, end: 20090527
  2. LANTUS [Suspect]
     Indication: TYPE 1 DIABETES MELLITUS
     Dosage: 70 UNITS SQ QHS
     Route: 058
     Dates: start: 20090521, end: 20090527
  3. HEP [Concomitant]
  4. CARBAMAZEPINE [Concomitant]
  5. DILTIAZEM [Concomitant]
  6. HALDOL [Concomitant]
  7. HYDRALAZINE [Concomitant]
  8. LANSOPRAZOLE [Concomitant]
  9. LEVETIRACETAM [Concomitant]
  10. LISINOPRIL [Concomitant]
  11. MONTELUKAST [Concomitant]
  12. PHENYTOIN [Concomitant]
  13. WARFARIN [Concomitant]
  14. POTASSIUM CHLORIDE [Concomitant]

REACTIONS (4)
  - BLOOD GLUCOSE DECREASED [None]
  - BLOOD GLUCOSE INCREASED [None]
  - DEPRESSED LEVEL OF CONSCIOUSNESS [None]
  - MENTAL STATUS CHANGES [None]
